FAERS Safety Report 11247471 (Version 2)
Quarter: 2016Q4

REPORT INFORMATION
  Report Type: Spontaneous
  Country: US (occurrence: US)
  Receive Date: 20150708
  Receipt Date: 20161213
  Transmission Date: 20170206
  Serious: Yes (Other)
  Sender: FDA-Public Use
  Company Number: PHEH2015US012820

PATIENT
  Sex: Female

DRUGS (2)
  1. GLEEVEC [Suspect]
     Active Substance: IMATINIB MESYLATE
     Indication: CHRONIC MYELOID LEUKAEMIA
     Route: 065
  2. TASIGNA [Suspect]
     Active Substance: NILOTINIB
     Indication: CHRONIC MYELOID LEUKAEMIA
     Route: 065

REACTIONS (17)
  - Pigmentation disorder [Unknown]
  - Dry eye [Unknown]
  - Pancreatitis [Unknown]
  - Skin fragility [Unknown]
  - Skin atrophy [Unknown]
  - Contusion [Unknown]
  - Dry mouth [Unknown]
  - Constipation [Unknown]
  - Cognitive disorder [Unknown]
  - Dry skin [Unknown]
  - Diarrhoea [Unknown]
  - Muscle spasms [Unknown]
  - Weight increased [Unknown]
  - Skin haemorrhage [Unknown]
  - Skin disorder [Unknown]
  - Alopecia [Unknown]
  - Oedema [Unknown]
